FAERS Safety Report 9316546 (Version 1)
Quarter: 2013Q2

REPORT INFORMATION
  Report Type: Spontaneous
  Country: US (occurrence: US)
  Receive Date: 20130530
  Receipt Date: 20130530
  Transmission Date: 20140414
  Serious: No
  Sender: FDA-Public Use
  Company Number: US-PFIZER INC-2013163499

PATIENT
  Age: 52 Year
  Sex: Female
  Weight: 79.37 kg

DRUGS (5)
  1. PRISTIQ [Suspect]
     Indication: DEPRESSION
     Dosage: 50 MG, 1X/DAY
     Route: 048
     Dates: end: 201305
  2. NEURONTIN [Suspect]
     Indication: PAIN
     Dosage: UNK, 2X/DAY
     Route: 048
  3. AMITRIPTYLINE [Concomitant]
     Dosage: UNK
  4. AMBIEN [Concomitant]
     Dosage: UNK
  5. KLONOPIN [Concomitant]
     Dosage: UNK

REACTIONS (5)
  - Drug withdrawal syndrome [Unknown]
  - Irritability [Unknown]
  - Nervousness [Unknown]
  - Crying [Unknown]
  - Off label use [Unknown]
